FAERS Safety Report 26129800 (Version 1)
Quarter: 2025Q4

REPORT INFORMATION
  Report Type: Report from Study
  Country: BR (occurrence: None)
  Receive Date: 20251208
  Receipt Date: 20251208
  Transmission Date: 20260117
  Serious: Yes (Other)
  Sender: UCB
  Company Number: BR-UCBSA-2025077620

PATIENT
  Weight: 115 kg

DRUGS (1)
  1. CERTOLIZUMAB PEGOL [Suspect]
     Active Substance: CERTOLIZUMAB PEGOL
     Indication: Psoriatic arthropathy
     Dosage: 400 MILLIGRAM (2 SYRINGES), EV 30 DAYS

REACTIONS (3)
  - Psoriatic arthropathy [Unknown]
  - Depressed mood [Unknown]
  - Drug ineffective [Unknown]
